FAERS Safety Report 10723184 (Version 4)
Quarter: 2015Q2

REPORT INFORMATION
  Report Type: Spontaneous
  Country: US (occurrence: US)
  Receive Date: 20150120
  Receipt Date: 20150505
  Transmission Date: 20150821
  Serious: No
  Sender: FDA-Public Use
  Company Number: US-PFIZER INC-2014323478

PATIENT
  Age: 83 Year
  Sex: Male
  Weight: 81 kg

DRUGS (5)
  1. SIMVASTATIN. [Concomitant]
     Active Substance: SIMVASTATIN
     Dosage: UNK
  2. CENTRUM SILVER [Concomitant]
     Active Substance: VITAMINS
     Dosage: UNK
  3. SUTENT [Suspect]
     Active Substance: SUNITINIB MALATE
     Indication: METASTATIC RENAL CELL CARCINOMA
     Dosage: 37.5 MG, DAILY 28 DAYS ON AND 14 OFF
     Dates: start: 20141126, end: 20150228
  4. GLUCOSAMINE [Concomitant]
     Active Substance: GLUCOSAMINE
  5. AZOPT [Concomitant]
     Active Substance: BRINZOLAMIDE
     Dosage: UNK

REACTIONS (8)
  - Stomatitis [Unknown]
  - Dyspepsia [Unknown]
  - Dehydration [Unknown]
  - Dysgeusia [Unknown]
  - Palmar-plantar erythrodysaesthesia syndrome [Not Recovered/Not Resolved]
  - Fatigue [Unknown]
  - Erythema [Unknown]
  - Diarrhoea [Unknown]
